FAERS Safety Report 9999451 (Version 1)
Quarter: 2014Q1

REPORT INFORMATION
  Report Type: Report from Study
  Country: US (occurrence: US)
  Receive Date: 20140312
  Receipt Date: 20140312
  Transmission Date: 20141002
  Serious: Yes (Other)
  Sender: FDA-Public Use
  Company Number: US-ALEXION PHARMACEUTICALS INC.-A201305053

PATIENT
  Age: 54 Year
  Sex: Female

DRUGS (3)
  1. SOLIRIS [Suspect]
     Indication: PAROXYSMAL NOCTURNAL HAEMOGLOBINURIA
     Dosage: UNK
  2. TPN /00897001/ [Suspect]
     Indication: NUTRITIONAL SUPPLEMENTATION
     Dosage: UNK
  3. TPN /00897001/ [Suspect]
     Indication: NUTRITIONAL SUPPLEMENTATION

REACTIONS (4)
  - Abdominal abscess [Unknown]
  - Tachycardia [Unknown]
  - Vomiting [Unknown]
  - Pyrexia [Recovered/Resolved]
